FAERS Safety Report 7425308-7 (Version None)
Quarter: 2011Q2

REPORT INFORMATION
  Report Type: 
  Country: None (occurrence: None)
  Receive Date: 20110413
  Receipt Date: 20110331
  Transmission Date: 20111010
  Serious: Yes (Hospitalization)
  Sender: FDA-Public Use
  Company Number: 2011SP006165

PATIENT
  Age: 43 Year
  Sex: Female
  Weight: 97.5 kg

DRUGS (7)
  1. IRINOTECAN HCL [Suspect]
     Indication: BREAST CANCER METASTATIC
     Dosage: 125 MG/M2; ;IV
     Route: 042
     Dates: start: 20110114
  2. ZOSYN [Concomitant]
  3. TEMOZOLOMIDE [Suspect]
     Indication: BREAST CANCER METASTATIC
     Dosage: 100 MG/M2; ;PO
     Route: 048
     Dates: start: 20110114
  4. ACETAMINOPHEN [Concomitant]
  5. PERCOCET [Concomitant]
  6. EXCEDRIN (MIGRAINE) [Concomitant]
  7. VANCOMYCIN [Concomitant]

REACTIONS (7)
  - HYDROCEPHALUS [None]
  - HEADACHE [None]
  - VOMITING [None]
  - THROMBOCYTOPENIA [None]
  - SEPSIS [None]
  - NAUSEA [None]
  - BACTERAEMIA [None]
